FAERS Safety Report 15414286 (Version 1)
Quarter: 2018Q3

REPORT INFORMATION
  Report Type: Report from Study
  Country: US (occurrence: US)
  Receive Date: 20180921
  Receipt Date: 20180921
  Transmission Date: 20181010
  Serious: Yes (Other)
  Sender: FDA-Public Use
  Company Number: US-AMGEN-USASL2018130621

PATIENT
  Sex: Male

DRUGS (2)
  1. PREDNISONE. [Suspect]
     Active Substance: PREDNISONE
     Indication: RHEUMATOID ARTHRITIS
     Dosage: UNK
     Route: 065
  2. ENBREL [Suspect]
     Active Substance: ETANERCEPT
     Indication: RHEUMATOID ARTHRITIS
     Dosage: UNK
     Route: 065
     Dates: start: 2010

REACTIONS (7)
  - Loss of personal independence in daily activities [Unknown]
  - Mobility decreased [Unknown]
  - Productive cough [Unknown]
  - Musculoskeletal stiffness [Unknown]
  - Blood glucose increased [Unknown]
  - Knee arthroplasty [Unknown]
  - Joint swelling [Unknown]

NARRATIVE: CASE EVENT DATE: 2010
